FAERS Safety Report 11727377 (Version 2)
Quarter: 2015Q4

REPORT INFORMATION
  Report Type: Spontaneous
  Country: US (occurrence: US)
  Receive Date: 20151112
  Receipt Date: 20151209
  Transmission Date: 20160304
  Serious: No
  Sender: FDA-Public Use
  Company Number: US-PFIZER INC-2015379831

PATIENT
  Age: 48 Year
  Sex: Female
  Weight: 73 kg

DRUGS (3)
  1. GABAPENTIN. [Concomitant]
     Active Substance: GABAPENTIN
     Dosage: UNK
  2. DETROL LA [Suspect]
     Active Substance: TOLTERODINE TARTRATE
     Indication: BLADDER SPASM
  3. DETROL LA [Suspect]
     Active Substance: TOLTERODINE TARTRATE
     Indication: CYSTITIS INTERSTITIAL
     Dosage: 4 MG, 1X/DAY
     Dates: start: 20151104, end: 20151105

REACTIONS (5)
  - Product use issue [Recovered/Resolved]
  - Hypersensitivity [Recovered/Resolved]
  - Nasal congestion [Recovered/Resolved]
  - Headache [Recovered/Resolved]
  - Peripheral swelling [Recovered/Resolved]

NARRATIVE: CASE EVENT DATE: 20151104
